FAERS Safety Report 21694854 (Version 1)
Quarter: 2022Q4

REPORT INFORMATION
  Report Type: Spontaneous
  Country: CA (occurrence: CA)
  Receive Date: 20221207
  Receipt Date: 20221207
  Transmission Date: 20230113
  Serious: Yes (Other)
  Sender: FDA-Public Use
  Company Number: CA-SUNOVION-2022SUN003346AA

PATIENT
  Age: 16 Year

DRUGS (1)
  1. APTIOM [Suspect]
     Active Substance: ESLICARBAZEPINE ACETATE
     Dosage: 1600 MG
     Route: 048

REACTIONS (3)
  - Seizure [Unknown]
  - Lennox-Gastaut syndrome [Unknown]
  - Overdose [Unknown]
